FAERS Safety Report 6095532-7 (Version None)
Quarter: 2009Q1

REPORT INFORMATION
  Report Type: 
  Country: None (occurrence: None)
  Receive Date: 20090227
  Receipt Date: 20080422
  Transmission Date: 20090719
  Serious: No
  Sender: FDA-Public Use
  Company Number: A0724095A

PATIENT
  Sex: Male

DRUGS (2)
  1. LAMICTAL [Suspect]
     Indication: BIPOLAR DISORDER
     Dosage: 200MG PER DAY
     Route: 048
     Dates: start: 20080101
  2. COREG [Concomitant]

REACTIONS (3)
  - EYE IRRITATION [None]
  - LACRIMATION INCREASED [None]
  - RHINORRHOEA [None]
